FAERS Safety Report 24651512 (Version 3)
Quarter: 2025Q3

REPORT INFORMATION
  Report Type: Spontaneous
  Country: JP (occurrence: JP)
  Receive Date: 20241122
  Receipt Date: 20250810
  Transmission Date: 20251020
  Serious: Yes (Other)
  Sender: ALEXION PHARMACEUTICALS
  Company Number: JP-ASTRAZENECA-240121219_032420_P_1

PATIENT
  Age: 43 Year
  Sex: Male

DRUGS (12)
  1. TEZSPIRE [Suspect]
     Active Substance: TEZEPELUMAB-EKKO
     Indication: Asthma
  2. TEZSPIRE [Suspect]
     Active Substance: TEZEPELUMAB-EKKO
  3. TEZSPIRE [Suspect]
     Active Substance: TEZEPELUMAB-EKKO
  4. TEZSPIRE [Suspect]
     Active Substance: TEZEPELUMAB-EKKO
  5. FASENRA [Suspect]
     Active Substance: BENRALIZUMAB
     Indication: Asthma
  6. FASENRA [Suspect]
     Active Substance: BENRALIZUMAB
  7. FASENRA [Suspect]
     Active Substance: BENRALIZUMAB
  8. PREDONINE [Concomitant]
     Active Substance: PREDNISOLONE
     Dosage: NUMBER OF SEPARATE DOSAGES UNKNOWN
     Route: 065
  9. PREDONINE [Concomitant]
     Active Substance: PREDNISOLONE
     Route: 065
  10. PREDONINE [Concomitant]
     Active Substance: PREDNISOLONE
     Route: 065
  11. FLUTICASONE FUROATE\VILANTEROL TRIFENATATE [Concomitant]
     Active Substance: FLUTICASONE FUROATE\VILANTEROL TRIFENATATE
     Route: 065
  12. FLUTICASONE FUROATE\VILANTEROL TRIFENATATE [Concomitant]
     Active Substance: FLUTICASONE FUROATE\VILANTEROL TRIFENATATE
     Route: 065

REACTIONS (4)
  - Cataract [Recovered/Resolved]
  - Drug ineffective [Unknown]
  - Asthma [Unknown]
  - Swelling of eyelid [Unknown]

NARRATIVE: CASE EVENT DATE: 20241106
